FAERS Safety Report 7202032-7 (Version None)
Quarter: 2010Q4

REPORT INFORMATION
  Report Type: 
  Country: None (occurrence: None)
  Receive Date: 20101229
  Receipt Date: 20101221
  Transmission Date: 20110411
  Serious: Yes (Other)
  Sender: FDA-Public Use
  Company Number: FR-NAPPMUNDI-GBR-2010-0007537

PATIENT
  Sex: Male

DRUGS (11)
  1. OXYCONTIN [Suspect]
     Indication: NEUROPATHY PERIPHERAL
     Dosage: 10 MG, BID
     Route: 048
     Dates: end: 20101020
  2. OXYNORM CAPSULES 5 MG [Suspect]
     Indication: PAIN
     Dosage: 5 MG, QID
     Route: 048
     Dates: end: 20101020
  3. CELLCEPT [Concomitant]
     Dosage: UNK
     Dates: start: 20101019
  4. ZELITREX [Concomitant]
  5. MOPRAL                             /00661201/ [Concomitant]
  6. CYCLOSPORINE [Concomitant]
     Dosage: UNK
     Dates: start: 20101018
  7. LASIX [Concomitant]
  8. FLUCONAZOLE [Concomitant]
  9. FORTUM                             /00559701/ [Concomitant]
  10. VANCOMYCIN [Concomitant]
  11. CIPROFLOXACIN HCL [Concomitant]

REACTIONS (7)
  - ANGIOEDEMA [None]
  - CONFUSIONAL STATE [None]
  - HYPERTENSION [None]
  - LARYNGEAL DYSPNOEA [None]
  - MIOSIS [None]
  - OVERDOSE [None]
  - TACHYCARDIA [None]
